FAERS Safety Report 8092368-2 (Version None)
Quarter: 2012Q1

REPORT INFORMATION
  Report Type: 
  Country: None (occurrence: None)
  Receive Date: 20120128
  Receipt Date: 20110824
  Transmission Date: 20120608
  Serious: No
  Sender: FDA-Public Use
  Company Number: US-ABBOTT-11P-163-0849170-00

PATIENT
  Age: 18 Year
  Sex: Female

DRUGS (7)
  1. METHOTREXATE [Concomitant]
     Indication: PRODUCT USED FOR UNKNOWN INDICATION
     Dosage: WEEKLY
     Route: 042
  2. HUMIRA [Suspect]
     Indication: SPONDYLOARTHROPATHY
     Dosage: INITIAL DOSE
     Dates: start: 20110824
  3. FOLIC ACID [Concomitant]
     Indication: PRODUCT USED FOR UNKNOWN INDICATION
  4. HUMIRA [Suspect]
     Indication: PSORIASIS
  5. SOLU-MEDROL [Concomitant]
     Indication: SPONDYLOARTHROPATHY
     Dosage: WEEKLY
     Route: 042
  6. HUMIRA [Suspect]
     Indication: ARTHROPATHY
  7. LEUCOVORIN CALCIUM [Concomitant]
     Indication: PRODUCT USED FOR UNKNOWN INDICATION
     Dosage: WEEKLY

REACTIONS (2)
  - INCORRECT STORAGE OF DRUG [None]
  - POOR QUALITY DRUG ADMINISTERED [None]
